FAERS Safety Report 13609282 (Version 2)
Quarter: 2017Q3

REPORT INFORMATION
  Report Type: Spontaneous
  Country: CN (occurrence: CN)
  Receive Date: 20170602
  Receipt Date: 20170822
  Transmission Date: 20171127
  Serious: Yes (Hospitalization)
  Sender: FDA-Public Use
  Company Number: PHHY2017CN074211

PATIENT
  Age: 49 Year
  Sex: Male

DRUGS (4)
  1. TEGRETOL [Suspect]
     Active Substance: CARBAMAZEPINE
     Indication: PARTIAL SEIZURES
     Dosage: UNK
     Route: 048
     Dates: start: 20170509
  2. TEGRETOL [Suspect]
     Active Substance: CARBAMAZEPINE
     Indication: EPILEPSY
  3. TEGRETOL [Suspect]
     Active Substance: CARBAMAZEPINE
     Indication: TRIGEMINAL NEURALGIA
  4. TEGRETOL [Suspect]
     Active Substance: CARBAMAZEPINE
     Indication: GENERALISED TONIC-CLONIC SEIZURE

REACTIONS (14)
  - Cholelithiasis [Recovered/Resolved]
  - Skin infection [Recovered/Resolved]
  - Hypersensitivity [Recovered/Resolved]
  - Blister [Recovered/Resolved]
  - Post-traumatic epilepsy [Recovered/Resolved]
  - Prescription drug used without a prescription [Unknown]
  - Emphysema [Unknown]
  - Alanine aminotransferase increased [Unknown]
  - Respiratory disorder [Unknown]
  - Drug eruption [Recovered/Resolved]
  - Rash [Recovered/Resolved]
  - Drug-induced liver injury [Recovered/Resolved]
  - Generalised erythema [Recovered/Resolved]
  - Abnormal behaviour [Unknown]

NARRATIVE: CASE EVENT DATE: 20170517
